FAERS Safety Report 13065542 (Version 2)
Quarter: 2017Q1

REPORT INFORMATION
  Report Type: Spontaneous
  Country: AR (occurrence: AR)
  Receive Date: 20161227
  Receipt Date: 20170110
  Transmission Date: 20170428
  Serious: Yes (Other)
  Sender: FDA-Public Use
  Company Number: AR-PFIZER INC-2016406266

PATIENT
  Age: 69 Year
  Sex: Male

DRUGS (3)
  1. SUTENT [Suspect]
     Active Substance: SUNITINIB MALATE
     Indication: METASTATIC RENAL CELL CARCINOMA
     Dosage: UNK, DAILY
     Dates: start: 20150113
  2. SUTENT [Suspect]
     Active Substance: SUNITINIB MALATE
     Dosage: UNK, CYCLIC (SCHEME 2/2)
     Dates: start: 20150113
  3. SUTENT [Suspect]
     Active Substance: SUNITINIB MALATE
     Dosage: UNK, CYCLIC (SCHEME 1/1)
     Dates: start: 20161213

REACTIONS (20)
  - Skin burning sensation [Recovered/Resolved]
  - Asthenia [Recovering/Resolving]
  - Asphyxia [Recovered/Resolved]
  - Anorectal discomfort [Recovered/Resolved]
  - Acne [Recovered/Resolved]
  - Oral pain [Recovered/Resolved]
  - Thrombosis [Recovered/Resolved]
  - Skin irritation [Recovered/Resolved]
  - Mood altered [Unknown]
  - Abdominal discomfort [Unknown]
  - Weight decreased [Recovered/Resolved]
  - Feeling abnormal [Recovered/Resolved]
  - Vomiting [Recovered/Resolved]
  - Lung disorder [Recovered/Resolved]
  - Cough [Recovered/Resolved]
  - Feeling cold [Recovered/Resolved]
  - Erythema [Recovered/Resolved]
  - Dry skin [Recovered/Resolved]
  - Colitis [Unknown]
  - Malaise [Recovering/Resolving]

NARRATIVE: CASE EVENT DATE: 2015
